FAERS Safety Report 5166051-7 (Version None)
Quarter: 2006Q4

REPORT INFORMATION
  Report Type: 
  Country: None (occurrence: None)
  Receive Date: 20061129
  Receipt Date: 20061115
  Transmission Date: 20070319
  Serious: Yes (Hospitalization)
  Sender: FDA-Public Use
  Company Number: 2006PV022715

PATIENT
  Age: 54 Year
  Sex: Male
  Weight: 114.76 kg

DRUGS (9)
  1. BYETTA [Suspect]
     Indication: DIABETES MELLITUS NON-INSULIN-DEPENDENT
     Dosage: 5 MCG; BID; SC, 5 MCG, BID; SC
     Route: 058
     Dates: start: 20060704, end: 20060101
  2. BYETTA [Suspect]
     Indication: DIABETES MELLITUS NON-INSULIN-DEPENDENT
     Dosage: 5 MCG; BID; SC, 5 MCG, BID; SC
     Route: 058
     Dates: start: 20060101
  3. GLUCOPHAGE [Concomitant]
  4. TOPROL-XL [Concomitant]
  5. LIPITOR [Concomitant]
  6. DIOVAN [Concomitant]
  7. ALDACTAZIDE 25/25 [Concomitant]
  8. POTASSIUM ACETATE [Concomitant]
  9. ASPIRIN [Concomitant]

REACTIONS (12)
  - ABSCESS INTESTINAL [None]
  - APPENDICEAL MUCOCOELE [None]
  - APPENDICITIS PERFORATED [None]
  - BLOOD GLUCOSE INCREASED [None]
  - CLOSTRIDIAL INFECTION [None]
  - CULTURE POSITIVE [None]
  - FLANK PAIN [None]
  - HAEMORRHAGIC ANAEMIA [None]
  - NEOPLASM OF APPENDIX [None]
  - POSTOPERATIVE ILEUS [None]
  - POSTOPERATIVE WOUND INFECTION [None]
  - WOUND INFECTION STAPHYLOCOCCAL [None]
